FAERS Safety Report 25219410 (Version 2)
Quarter: 2025Q2

REPORT INFORMATION
  Report Type: Spontaneous
  Country: US (occurrence: US)
  Receive Date: 20250421
  Receipt Date: 20250528
  Transmission Date: 20250716
  Serious: Yes (Other)
  Sender: MYLAN
  Company Number: US-MYLANLABS-2025M1033816

PATIENT
  Age: 45 Year
  Sex: Male

DRUGS (4)
  1. FENTANYL [Suspect]
     Active Substance: FENTANYL
     Indication: Product used for unknown indication
  2. GABAPENTIN [Suspect]
     Active Substance: GABAPENTIN
     Indication: Product used for unknown indication
  3. VICODIN [Suspect]
     Active Substance: ACETAMINOPHEN\HYDROCODONE BITARTRATE
     Indication: Intervertebral disc protrusion
  4. COCAINE [Suspect]
     Active Substance: COCAINE
     Indication: Product used for unknown indication

REACTIONS (2)
  - Loss of consciousness [Recovered/Resolved]
  - Drug abuse [Unknown]
